FAERS Safety Report 4594830-3 (Version None)
Quarter: 2005Q1

REPORT INFORMATION
  Report Type: 
  Country: None (occurrence: None)
  Receive Date: 20050223
  Receipt Date: 20050210
  Transmission Date: 20050727
  Serious: Yes (Hospitalization)
  Sender: FDA-Public Use
  Company Number: 6013025

PATIENT
  Age: 52 Year
  Sex: Female

DRUGS (10)
  1. LEVOTHYROXINE SODIUM [Suspect]
     Indication: DRUG USE FOR UNKNOWN INDICATION
     Dosage: ORAL
     Route: 048
  2. LUTENYL (TABLETS) (NOMEGESTROL ACETATE) [Suspect]
     Indication: DRUG USE FOR UNKNOWN INDICATION
     Dosage: ORAL
     Route: 048
  3. ALDACTONE [Suspect]
     Indication: DRUG USE FOR UNKNOWN INDICATION
     Dosage: 100 MG (50 MG, 2 IN 1 D)
     Route: 048
     Dates: end: 20040622
  4. ESTRADERM [Suspect]
     Indication: DRUG USE FOR UNKNOWN INDICATION
     Dosage: 2 PER WEEK (2 IN 1 WK)
     Route: 062
  5. HYZAAR [Suspect]
     Indication: DRUG USE FOR UNKNOWN INDICATION
     Dosage: 2 PER DAY (2 IN 1 D) ORAL
     Route: 048
     Dates: end: 20040616
  6. TRIZIVIR [Suspect]
     Indication: DRUG USE FOR UNKNOWN INDICATION
     Dosage: 2 PER DAY (2 IN 1 D) ORAL
     Route: 048
     Dates: start: 20020207
  7. LIPANOR  (CIPROFIBRATE) [Concomitant]
  8. DIFRAREL  (BETACAROTENE, MYRTILLUS) [Concomitant]
  9. CORGARD [Concomitant]
  10. ZELITREX (TABLETS) (VALACICLOVIR) [Concomitant]

REACTIONS (2)
  - DEEP VEIN THROMBOSIS [None]
  - PULMONARY EMBOLISM [None]
